FAERS Safety Report 23956722 (Version 1)
Quarter: 2024Q2

REPORT INFORMATION
  Report Type: Spontaneous
  Country: US (occurrence: US)
  Receive Date: 20240610
  Receipt Date: 20240610
  Transmission Date: 20240716
  Serious: Yes (Other)
  Sender: FDA-Public Use
  Company Number: US-TEVA-VS-3206157

PATIENT

DRUGS (1)
  1. DEXTROAMPHETAMINE SACCHARATE, AMPHETAMINE ASPARTATE MONOHYDRATE, DEXTR [Suspect]
     Active Substance: AMPHETAMINE ASPARTATE MONOHYDRATE\AMPHETAMINE SULFATE\DEXTROAMPHETAMINE SACCHARATE\DEXTROAMPHETAMINE
     Dosage: CAPSULES - EXTENDED / SUSTAINED RELEASE
     Route: 065

REACTIONS (4)
  - Suicidal behaviour [Unknown]
  - Insomnia [Unknown]
  - Impaired work ability [Unknown]
  - Loss of personal independence in daily activities [Unknown]
